FAERS Safety Report 19988303 (Version 1)
Quarter: 2021Q4

REPORT INFORMATION
  Report Type: Spontaneous
  Country: BR (occurrence: BR)
  Receive Date: 20211022
  Receipt Date: 20211022
  Transmission Date: 20220303
  Serious: Yes (Death, Hospitalization, Other)
  Sender: FDA-Public Use
  Company Number: BR-SA-SAC20211021001589

PATIENT
  Age: 86 Year
  Sex: Male
  Weight: 78 kg

DRUGS (4)
  1. ENOXAPARIN SODIUM [Suspect]
     Active Substance: ENOXAPARIN SODIUM
     Indication: Anticoagulant therapy
     Dosage: 60 MG, Q12H
     Route: 058
     Dates: start: 20200914, end: 20200917
  2. PLAVIX [Suspect]
     Active Substance: CLOPIDOGREL BISULFATE
     Indication: Antiplatelet therapy
     Dosage: 75 MG, QD
     Route: 048
     Dates: start: 20200914, end: 20200917
  3. ASPIRIN [Suspect]
     Active Substance: ASPIRIN
     Indication: Antiplatelet therapy
     Dosage: 81 MG
     Dates: start: 20200914, end: 20200917
  4. ASPIRIN\DIHYDROXYALUMINUM AMINOACETATE ANHYDROUS\MAGNESIUM CARBONATE [Suspect]
     Active Substance: ASPIRIN\DIHYDROXYALUMINUM AMINOACETATE ANHYDROUS\MAGNESIUM CARBONATE
     Indication: Antiplatelet therapy
     Dosage: 81 MG, QD
     Route: 048
     Dates: start: 20200915, end: 20200915

REACTIONS (12)
  - Acquired Von Willebrand^s disease [Fatal]
  - Myeloproliferative neoplasm [Fatal]
  - Cardio-respiratory arrest [Fatal]
  - Pulseless electrical activity [Fatal]
  - Cardiac failure [Fatal]
  - Septic shock [Fatal]
  - Embolism [Fatal]
  - Blood disorder [Recovered/Resolved]
  - Condition aggravated [Recovered/Resolved]
  - Haemoglobin decreased [Recovered/Resolved]
  - Platelet count decreased [Unknown]
  - Haematoma [Unknown]

NARRATIVE: CASE EVENT DATE: 20200915
